FAERS Safety Report 19709194 (Version 1)
Quarter: 2021Q3

REPORT INFORMATION
  Report Type: Spontaneous
  Country: IT (occurrence: IT)
  Receive Date: 20210817
  Receipt Date: 20210817
  Transmission Date: 20211014
  Serious: Yes (Other)
  Sender: FDA-Public Use
  Company Number: IT-MYLANLABS-2021M1050671

PATIENT
  Age: 40 Year
  Sex: Female

DRUGS (2)
  1. SORAFENIB [Suspect]
     Active Substance: SORAFENIB
     Indication: ACUTE MYELOID LEUKAEMIA
     Dosage: 400 MG, BID
     Route: 048
  2. SORAFENIB [Suspect]
     Active Substance: SORAFENIB
     Dosage: 200 MG, BID
     Route: 048

REACTIONS (6)
  - Skin toxicity [Unknown]
  - Mucosal toxicity [Unknown]
  - Haematotoxicity [Unknown]
  - Gastrointestinal toxicity [Unknown]
  - Product use in unapproved indication [Unknown]
  - Off label use [Unknown]
